FAERS Safety Report 25512360 (Version 1)
Quarter: 2025Q3

REPORT INFORMATION
  Report Type: Spontaneous
  Country: US (occurrence: US)
  Receive Date: 20250703
  Receipt Date: 20250703
  Transmission Date: 20251020
  Serious: No
  Sender: ROCHE
  Company Number: US-ROCHE-10000326418

PATIENT
  Age: 29 Year

DRUGS (8)
  1. COBIMETINIB [Suspect]
     Active Substance: COBIMETINIB
     Indication: Haematological neoplasm
     Route: 065
  2. IMATINIB [Suspect]
     Active Substance: IMATINIB
     Indication: Haematological neoplasm
     Route: 065
  3. RUXOLITINIB [Suspect]
     Active Substance: RUXOLITINIB
     Indication: Haematological neoplasm
     Route: 065
  4. CYCLOPHOSPHAMIDE [Suspect]
     Active Substance: CYCLOPHOSPHAMIDE
     Indication: Haematological neoplasm
     Route: 065
  5. CLADRIBINE [Suspect]
     Active Substance: CLADRIBINE
     Indication: Haematological neoplasm
     Route: 065
  6. MIDOSTAURIN [Suspect]
     Active Substance: MIDOSTAURIN
     Indication: Haematological neoplasm
     Route: 065
  7. AVAPRITINIB [Suspect]
     Active Substance: AVAPRITINIB
     Indication: Haematological neoplasm
     Route: 065
  8. PREDNISONE [Suspect]
     Active Substance: PREDNISONE
     Indication: Haematological neoplasm
     Route: 065

REACTIONS (5)
  - Nausea [Unknown]
  - Dyspepsia [Unknown]
  - Abdominal pain [Unknown]
  - Bone pain [Unknown]
  - Fatigue [Unknown]
